FAERS Safety Report 20040150 (Version 2)
Quarter: 2021Q4

REPORT INFORMATION
  Report Type: Spontaneous
  Country: US (occurrence: US)
  Receive Date: 20211106
  Receipt Date: 20211129
  Transmission Date: 20220304
  Serious: No
  Sender: FDA-Public Use
  Company Number: US-TAKEDA-2021TUS068919

PATIENT
  Age: 14 Year
  Sex: Male

DRUGS (1)
  1. VYVANSE [Suspect]
     Active Substance: LISDEXAMFETAMINE DIMESYLATE
     Indication: Attention deficit hyperactivity disorder
     Dosage: 40 MILLIGRAM, QD
     Route: 048
     Dates: start: 20211005, end: 20211020

REACTIONS (2)
  - Muscle twitching [Unknown]
  - Tic [Unknown]

NARRATIVE: CASE EVENT DATE: 20211006
